FAERS Safety Report 22244012 (Version 2)
Quarter: 2023Q2

REPORT INFORMATION
  Report Type: Spontaneous
  Country: CN (occurrence: CN)
  Receive Date: 20230424
  Receipt Date: 20230512
  Transmission Date: 20230722
  Serious: Yes (Hospitalization, Other)
  Sender: FDA-Public Use
  Company Number: CN-JNJFOC-20230427967

PATIENT
  Age: 54 Year
  Sex: Male

DRUGS (7)
  1. IMBRUVICA [Suspect]
     Active Substance: IBRUTINIB
     Indication: Follicular lymphoma
     Route: 048
     Dates: start: 20200320, end: 20200426
  2. IMBRUVICA [Suspect]
     Active Substance: IBRUTINIB
     Indication: Follicular lymphoma
     Route: 048
     Dates: start: 20200427, end: 20200514
  3. IMBRUVICA [Suspect]
     Active Substance: IBRUTINIB
     Indication: Follicular lymphoma
     Route: 048
     Dates: start: 20200306, end: 20200317
  4. IMBRUVICA [Suspect]
     Active Substance: IBRUTINIB
     Indication: Follicular lymphoma
     Route: 048
     Dates: start: 20200515, end: 20200527
  5. IMBRUVICA [Suspect]
     Active Substance: IBRUTINIB
     Indication: Follicular lymphoma
     Route: 048
     Dates: start: 20200318, end: 20200319
  6. IMBRUVICA [Suspect]
     Active Substance: IBRUTINIB
     Indication: Follicular lymphoma
     Route: 048
     Dates: start: 20200303, end: 20200303
  7. METHYLPREDNISOLONE [Concomitant]
     Active Substance: METHYLPREDNISOLONE
     Indication: Product used for unknown indication

REACTIONS (2)
  - Liver injury [Recovering/Resolving]
  - Product use in unapproved indication [Unknown]
